FAERS Safety Report 21785367 (Version 1)
Quarter: 2022Q4

REPORT INFORMATION
  Report Type: Spontaneous
  Country: US (occurrence: None)
  Receive Date: 20221223
  Receipt Date: 20221223
  Transmission Date: 20230113
  Serious: Yes (Other)
  Sender: FDA-Public Use
  Company Number: None

PATIENT
  Age: 62 Year
  Sex: Female

DRUGS (17)
  1. OPSUMIT [Suspect]
     Active Substance: MACITENTAN
     Indication: Pulmonary arterial hypertension
     Dosage: FREQUENCY : DAILY;?
     Route: 048
     Dates: start: 20180212
  2. SILDENAFIL [Concomitant]
     Active Substance: SILDENAFIL
  3. SELEXIPAG [Concomitant]
     Active Substance: SELEXIPAG
  4. SPIRONOLACTONE [Concomitant]
  5. ATORVASTATIN [Concomitant]
  6. TORSEMIDE [Concomitant]
     Active Substance: TORSEMIDE
  7. ALLOPURINOL [Concomitant]
     Active Substance: ALLOPURINOL
  8. DEXAMETHASONE [Concomitant]
     Active Substance: DEXAMETHASONE
  9. ALBUTEROL [Concomitant]
     Active Substance: ALBUTEROL
  10. TUSSIN DM [Concomitant]
     Active Substance: DEXTROMETHORPHAN HYDROBROMIDE\GUAIFENESIN
  11. ALBUTEROL SULFATE [Concomitant]
     Active Substance: ALBUTEROL SULFATE
  12. COLCHICINE [Concomitant]
     Active Substance: COLCHICINE
  13. clobetasol top oint [Concomitant]
  14. estrace vagl cream [Concomitant]
  15. PRADAXA [Concomitant]
     Active Substance: DABIGATRAN ETEXILATE MESYLATE
  16. ONDANSETRON [Concomitant]
     Active Substance: ONDANSETRON
  17. LEVOTHYROXINE [Concomitant]
     Active Substance: LEVOTHYROXINE

REACTIONS (3)
  - Erythema [None]
  - Joint swelling [None]
  - Bursitis [None]

NARRATIVE: CASE EVENT DATE: 20221209
